FAERS Safety Report 8215460 (Version 10)
Quarter: 2014Q1

REPORT INFORMATION
  Report Type: Report from Study
  Country: DK (occurrence: DK)
  Receive Date: 20111031
  Receipt Date: 20140312
  Transmission Date: 20141002
  Serious: Yes (Hospitalization, Other)
  Sender: FDA-Public Use
  Company Number: DK-BIOGENIDEC-2011BI038128

PATIENT
  Age: 61 Year
  Sex: Female

DRUGS (6)
  1. TYSABRI [Suspect]
     Indication: MULTIPLE SCLEROSIS
     Route: 042
     Dates: start: 20080908, end: 20110825
  2. SIRDALUD [Concomitant]
     Indication: MUSCLE SPASTICITY
     Dates: start: 2008
  3. BACLOFEN [Concomitant]
     Indication: MUSCLE SPASTICITY
     Dates: start: 20070514
  4. OXYCONTIN [Concomitant]
     Indication: PAIN
     Dates: start: 2007
  5. LAMOTRIGINE [Concomitant]
     Indication: PAIN
     Dates: start: 2007
  6. ETODOLAC [Concomitant]
     Indication: PAIN
     Dates: start: 2007

REACTIONS (2)
  - Progressive multifocal leukoencephalopathy [Recovered/Resolved]
  - Immune reconstitution inflammatory syndrome [Recovered/Resolved]
